FAERS Safety Report 4378078-3 (Version None)
Quarter: 2004Q2

REPORT INFORMATION
  Report Type: 
  Country: None (occurrence: None)
  Receive Date: 20040609
  Receipt Date: 20040526
  Transmission Date: 20050107
  Serious: Yes (Hospitalization)
  Sender: FDA-Public Use
  Company Number: JP_040302715

PATIENT
  Age: 54 Year
  Sex: Male
  Weight: 76 kg

DRUGS (7)
  1. HUMALOG [Suspect]
     Indication: DIABETES MELLITUS NON-INSULIN-DEPENDENT
     Dosage: 16 U DAY
     Dates: start: 20021208, end: 20030608
  2. ISOPHANE INSULIN [Concomitant]
  3. URSO [Concomitant]
  4. PLETAL [Concomitant]
  5. ZOLPIDEM TARTRATE [Concomitant]
  6. MEXITIL [Concomitant]
  7. NABUMETONE [Concomitant]

REACTIONS (2)
  - CEREBRAL INFARCTION [None]
  - HEMIPLEGIA TRANSIENT [None]
